FAERS Safety Report 10033846 (Version 1)
Quarter: 2014Q1

REPORT INFORMATION
  Report Type: Spontaneous
  Country: US (occurrence: US)
  Receive Date: 20140325
  Receipt Date: 20140325
  Transmission Date: 20141002
  Serious: Yes (Death)
  Sender: FDA-Public Use
  Company Number: US-ROCHE-1368513

PATIENT
  Age: 82 Year
  Sex: Male

DRUGS (2)
  1. TNKASE [Suspect]
     Indication: CEREBROVASCULAR ACCIDENT
     Route: 065
  2. HEPARIN [Concomitant]

REACTIONS (1)
  - Death [Fatal]
